FAERS Safety Report 11154625 (Version 1)
Quarter: 2015Q2

REPORT INFORMATION
  Report Type: Spontaneous
  Country: US (occurrence: None)
  Receive Date: 20150529
  Receipt Date: 20150529
  Transmission Date: 20150821
  Serious: Yes (Death, Other)
  Sender: FDA-Public Use
  Company Number: 2015JUB00142

PATIENT
  Age: 60 Year
  Sex: Male

DRUGS (3)
  1. PREDNISONE. [Suspect]
     Active Substance: PREDNISONE
     Indication: ANALGESIC THERAPY
     Route: 048
  2. PREDNISONE. [Suspect]
     Active Substance: PREDNISONE
     Indication: MYALGIA
     Route: 048
  3. VALACYCLOVIR [Concomitant]
     Active Substance: VALACYCLOVIR HYDROCHLORIDE

REACTIONS (11)
  - Brain oedema [None]
  - Cerebral arteriosclerosis [None]
  - Varicella zoster virus infection [None]
  - Drug abuse [None]
  - Sudden death [None]
  - Cardiac hypertrophy [None]
  - Myocardial fibrosis [None]
  - Arteriosclerosis coronary artery [None]
  - Necrosis [None]
  - Arrhythmia [None]
  - Impaired healing [None]
